FAERS Safety Report 21293178 (Version 2)
Quarter: 2022Q3

REPORT INFORMATION
  Report Type: Spontaneous
  Country: IN (occurrence: IN)
  Receive Date: 20220905
  Receipt Date: 20220919
  Transmission Date: 20221027
  Serious: Yes (Hospitalization, Other)
  Sender: FDA-Public Use
  Company Number: IN-CIPLA LTD.-2022IN05249

PATIENT
  Age: 45 Year
  Sex: Male

DRUGS (5)
  1. OLANZAPINE [Suspect]
     Active Substance: OLANZAPINE
     Indication: Depression
     Dosage: 2.5 MILLIGRAM, QD
     Route: 048
  2. VENLAFAXINE [Suspect]
     Active Substance: VENLAFAXINE HYDROCHLORIDE
     Indication: Depression
     Dosage: 75 MILLIGRAM, QD
     Route: 048
  3. CHLORDIAZEPOXIDE [Suspect]
     Active Substance: CHLORDIAZEPOXIDE
     Indication: Depression
     Dosage: 5 MILLIGRAM, TID
     Route: 065
  4. AMITRIPTYLINE [Suspect]
     Active Substance: AMITRIPTYLINE
     Indication: Depression
     Dosage: 12.5 MILLIGRAM, QD
     Route: 048
  5. AMITRIPTYLINE [Suspect]
     Active Substance: AMITRIPTYLINE
     Dosage: 10 MILLIGRAM, QD (DOSE REDUCED)
     Route: 048

REACTIONS (6)
  - Cardiac failure [Recovering/Resolving]
  - Acute kidney injury [Recovering/Resolving]
  - Left ventricular dysfunction [Recovering/Resolving]
  - Lung consolidation [Unknown]
  - Hepatic function abnormal [Recovering/Resolving]
  - Therapy non-responder [Unknown]
